FAERS Safety Report 23325663 (Version 6)
Quarter: 2024Q3

REPORT INFORMATION
  Report Type: Report from Study
  Country: JP (occurrence: JP)
  Receive Date: 20231221
  Receipt Date: 20240722
  Transmission Date: 20241016
  Serious: Yes (Hospitalization, Other)
  Sender: NOVARTIS
  Company Number: JP-002147023-NVSJ2023JP017768

PATIENT
  Age: 58 Year
  Sex: Female
  Weight: 53.8 kg

DRUGS (33)
  1. CANAKINUMAB [Suspect]
     Active Substance: CANAKINUMAB
     Indication: Familial mediterranean fever
     Dosage: 150 MG
     Route: 058
     Dates: start: 20190613
  2. CANAKINUMAB [Suspect]
     Active Substance: CANAKINUMAB
     Dosage: 150 MG
     Route: 058
     Dates: start: 20190716
  3. CANAKINUMAB [Suspect]
     Active Substance: CANAKINUMAB
     Dosage: 150 MG
     Route: 058
     Dates: start: 20190809
  4. CANAKINUMAB [Suspect]
     Active Substance: CANAKINUMAB
     Dosage: 300 MG
     Route: 058
     Dates: start: 20190906
  5. CANAKINUMAB [Suspect]
     Active Substance: CANAKINUMAB
     Dosage: 300 MG
     Route: 058
     Dates: start: 20191011
  6. CANAKINUMAB [Suspect]
     Active Substance: CANAKINUMAB
     Dosage: 300 MG
     Route: 058
     Dates: start: 20191115
  7. CANAKINUMAB [Suspect]
     Active Substance: CANAKINUMAB
     Dosage: 300 MG
     Route: 058
     Dates: start: 20191213
  8. CANAKINUMAB [Suspect]
     Active Substance: CANAKINUMAB
     Dosage: 300 MG
     Route: 058
     Dates: start: 20200123
  9. CANAKINUMAB [Suspect]
     Active Substance: CANAKINUMAB
     Dosage: 300 MG
     Route: 058
     Dates: start: 20200228
  10. CANAKINUMAB [Suspect]
     Active Substance: CANAKINUMAB
     Dosage: 300 MG
     Route: 058
     Dates: start: 20200403
  11. CANAKINUMAB [Suspect]
     Active Substance: CANAKINUMAB
     Dosage: 300 MG
     Route: 058
     Dates: start: 20200508
  12. CANAKINUMAB [Suspect]
     Active Substance: CANAKINUMAB
     Dosage: 300 MG
     Route: 058
     Dates: start: 20200612
  13. CANAKINUMAB [Suspect]
     Active Substance: CANAKINUMAB
     Dosage: 300 MG
     Route: 058
     Dates: start: 20200717
  14. CANAKINUMAB [Suspect]
     Active Substance: CANAKINUMAB
     Dosage: 300 MG
     Route: 058
     Dates: start: 20200825
  15. CANAKINUMAB [Suspect]
     Active Substance: CANAKINUMAB
     Dosage: 300 MG
     Route: 058
     Dates: start: 20200925
  16. CANAKINUMAB [Suspect]
     Active Substance: CANAKINUMAB
     Dosage: 300 MG
     Route: 058
     Dates: start: 20201030
  17. CANAKINUMAB [Suspect]
     Active Substance: CANAKINUMAB
     Dosage: 300 MG
     Route: 058
     Dates: start: 20201204
  18. CANAKINUMAB [Suspect]
     Active Substance: CANAKINUMAB
     Dosage: 300 MG
     Route: 058
     Dates: start: 20210113
  19. CANAKINUMAB [Suspect]
     Active Substance: CANAKINUMAB
     Dosage: 300 MG
     Route: 058
     Dates: start: 20210217
  20. CANAKINUMAB [Suspect]
     Active Substance: CANAKINUMAB
     Dosage: 300 MG
     Route: 058
     Dates: start: 20210324
  21. CANAKINUMAB [Suspect]
     Active Substance: CANAKINUMAB
     Dosage: 300 MG
     Route: 058
     Dates: start: 20210428
  22. CANAKINUMAB [Suspect]
     Active Substance: CANAKINUMAB
     Dosage: 300 MG
     Route: 058
     Dates: start: 20210602
  23. CANAKINUMAB [Suspect]
     Active Substance: CANAKINUMAB
     Dosage: UNK
     Route: 058
  24. CANAKINUMAB [Suspect]
     Active Substance: CANAKINUMAB
     Dosage: 300 MG
     Route: 058
     Dates: start: 20230713
  25. CANAKINUMAB [Suspect]
     Active Substance: CANAKINUMAB
     Dosage: 300 MG
     Route: 058
     Dates: start: 20230817
  26. CANAKINUMAB [Suspect]
     Active Substance: CANAKINUMAB
     Dosage: 150 MG
     Route: 058
     Dates: start: 20230921
  27. CANAKINUMAB [Suspect]
     Active Substance: CANAKINUMAB
     Dosage: 150 MG
     Route: 058
     Dates: start: 20231026
  28. CANAKINUMAB [Suspect]
     Active Substance: CANAKINUMAB
     Dosage: 150 MG
     Route: 058
     Dates: start: 20231130
  29. CANAKINUMAB [Suspect]
     Active Substance: CANAKINUMAB
     Dosage: 300 MG
     Route: 058
     Dates: start: 20240104
  30. CANAKINUMAB [Suspect]
     Active Substance: CANAKINUMAB
     Dosage: 300 MG
     Route: 058
     Dates: start: 20240208
  31. CANAKINUMAB [Suspect]
     Active Substance: CANAKINUMAB
     Dosage: 300 MG
     Route: 058
     Dates: start: 20240321
  32. CANAKINUMAB [Suspect]
     Active Substance: CANAKINUMAB
     Dosage: 300 MG
     Route: 058
     Dates: start: 20240425
  33. CANAKINUMAB [Suspect]
     Active Substance: CANAKINUMAB
     Dosage: 300 MG
     Route: 058
     Dates: start: 20240528, end: 20240528

REACTIONS (18)
  - Peritonitis bacterial [Recovered/Resolved]
  - Pyrexia [Recovering/Resolving]
  - Abdominal pain [Recovering/Resolving]
  - Diarrhoea [Recovering/Resolving]
  - Escherichia urinary tract infection [Recovering/Resolving]
  - Peritonitis [Recovered/Resolved]
  - Abdominal pain upper [Recovering/Resolving]
  - Nausea [Recovering/Resolving]
  - Inflammation [Recovering/Resolving]
  - Abdominal tenderness [Recovering/Resolving]
  - Abdominal rebound tenderness [Recovering/Resolving]
  - Ascites [Unknown]
  - Panniculitis [Unknown]
  - Gastrointestinal wall thickening [Unknown]
  - Intestinal dilatation [Unknown]
  - Infection [Unknown]
  - Familial mediterranean fever [Unknown]
  - Disease recurrence [Unknown]

NARRATIVE: CASE EVENT DATE: 20231201
